FAERS Safety Report 8193157-0 (Version None)
Quarter: 2012Q1

REPORT INFORMATION
  Report Type: 
  Country: None (occurrence: None)
  Receive Date: 20120221
  Receipt Date: 20111111
  Transmission Date: 20120608
  Serious: No
  Sender: FDA-Public Use
  Company Number: 046390

PATIENT
  Age: 84 Year
  Sex: Male

DRUGS (3)
  1. LEVETIRACETAM [Concomitant]
  2. LACOSAMIDE [Suspect]
     Indication: STATUS EPILEPTICUS
     Dosage: (INTRAVENOUS (NOT OTHERWISE SPECIFIED)) ; (100 MG BID INTRAVENOUS (NOT OTHERWISE SPECIFIED))
     Route: 042
  3. LACOSAMIDE [Suspect]
     Indication: CONVULSION
     Dosage: (INTRAVENOUS (NOT OTHERWISE SPECIFIED)) ; (100 MG BID INTRAVENOUS (NOT OTHERWISE SPECIFIED))
     Route: 042

REACTIONS (1)
  - CONVULSION [None]
